FAERS Safety Report 6299923-0 (Version None)
Quarter: 2009Q3

REPORT INFORMATION
  Report Type: 
  Country: None (occurrence: None)
  Receive Date: 20090806
  Receipt Date: 20090730
  Transmission Date: 20100115
  Serious: Yes (Other)
  Sender: FDA-Public Use
  Company Number: US-BAYER-200912541BCC

PATIENT
  Age: 73 Year
  Sex: Male
  Weight: 57 kg

DRUGS (6)
  1. ALEVE (CAPLET) [Suspect]
     Indication: ARTHRITIS
     Dosage: TOTAL DAILY DOSE: 440 MG  UNIT DOSE: 220 MG
     Route: 048
     Dates: start: 20081001, end: 20090729
  2. METOPROLOL SUCCINATE [Concomitant]
     Route: 065
  3. HYDROCHLOROTHIAZIDE [Concomitant]
     Route: 065
  4. LISINOPRIL [Concomitant]
     Route: 065
  5. DILTIAZEM [Concomitant]
     Route: 065
  6. LEVOTHYROXINE [Concomitant]
     Route: 065

REACTIONS (1)
  - EPISTAXIS [None]
